FAERS Safety Report 19568623 (Version 1)
Quarter: 2021Q3

REPORT INFORMATION
  Report Type: Spontaneous
  Country: AU (occurrence: AU)
  Receive Date: 20210714
  Receipt Date: 20210714
  Transmission Date: 20211014
  Serious: Yes (Death, Other)
  Sender: FDA-Public Use
  Company Number: NVSC2021AU152102

PATIENT
  Age: 37 Year
  Sex: Male
  Weight: 75.7 kg

DRUGS (1)
  1. KYMRIAH [Suspect]
     Active Substance: TISAGENLECLEUCEL
     Indication: DIFFUSE LARGE B-CELL LYMPHOMA
     Dosage: UNK UNK, ONCE/SINGLE
     Route: 041
     Dates: start: 20210706

REACTIONS (7)
  - Tumour lysis syndrome [Fatal]
  - Haemophagocytic lymphohistiocytosis [Fatal]
  - Malignant neoplasm progression [Fatal]
  - Cytokine release syndrome [Fatal]
  - Sepsis [Fatal]
  - Diffuse large B-cell lymphoma [Fatal]
  - Out of specification test results [Unknown]

NARRATIVE: CASE EVENT DATE: 20210706
